FAERS Safety Report 24031570 (Version 1)
Quarter: 2024Q2

REPORT INFORMATION
  Report Type: Report from Study
  Country: IL (occurrence: IL)
  Receive Date: 20240629
  Receipt Date: 20240629
  Transmission Date: 20240716
  Serious: Yes (Hospitalization)
  Sender: FDA-Public Use
  Company Number: IL-ABBVIE-5805051

PATIENT
  Sex: Female

DRUGS (2)
  1. CARBIDOPA\LEVODOPA [Suspect]
     Active Substance: CARBIDOPA\LEVODOPA
     Indication: Parkinson^s disease
     Route: 050
     Dates: start: 20190806
  2. CARBIDOPA\LEVODOPA [Suspect]
     Active Substance: CARBIDOPA\LEVODOPA
     Dosage: MORNING DOSAGE 8ML,CONTINUOUS DOSAGE 2ML/H, EXTRA DOSAGE 0.1ML
     Route: 050

REACTIONS (6)
  - Lung neoplasm [Unknown]
  - Hypophagia [Unknown]
  - Suspiciousness [Unknown]
  - Cognitive disorder [Unknown]
  - Mobility decreased [Unknown]
  - Disorientation [Unknown]
